FAERS Safety Report 16657031 (Version 1)
Quarter: 2019Q3

REPORT INFORMATION
  Report Type: Report from Study
  Country: US (occurrence: US)
  Receive Date: 20190801
  Receipt Date: 20190801
  Transmission Date: 20191004
  Serious: Yes (Hospitalization)
  Sender: FDA-Public Use
  Company Number: US-PFIZER INC-2019300627

PATIENT
  Age: 51 Year
  Sex: Male

DRUGS (1)
  1. SUTENT [Suspect]
     Active Substance: SUNITINIB MALATE
     Indication: GASTROINTESTINAL STROMAL TUMOUR
     Dosage: 50 MG, CYCLIC (50MG DAILY FOR 28 DAYS OF 42 DAY CYCLE)
     Route: 048
     Dates: start: 20190609, end: 20190712

REACTIONS (7)
  - Vomiting [Unknown]
  - Fatigue [Unknown]
  - Dehydration [Unknown]
  - Nausea [Unknown]
  - Neoplasm progression [Unknown]
  - Mucosal inflammation [Unknown]
  - Malnutrition [Unknown]
